FAERS Safety Report 7678881-8 (Version None)
Quarter: 2011Q3

REPORT INFORMATION
  Report Type: 
  Country: None (occurrence: None)
  Receive Date: 20110812
  Receipt Date: 20110804
  Transmission Date: 20111222
  Serious: Yes (Hospitalization)
  Sender: FDA-Public Use
  Company Number: US-BIOGENIDEC-2011BI028344

PATIENT
  Age: 58 Year
  Sex: Female

DRUGS (3)
  1. AMANTADINE HCL [Concomitant]
     Indication: FATIGUE
  2. NEURONTIN [Concomitant]
     Indication: PAIN IN EXTREMITY
  3. TYSABRI [Suspect]
     Indication: MULTIPLE SCLEROSIS
     Route: 042
     Dates: start: 20110318

REACTIONS (6)
  - OPERATIVE HAEMORRHAGE [None]
  - UTERINE PROLAPSE [None]
  - BAND SENSATION [None]
  - PAIN IN EXTREMITY [None]
  - BLADDER PROLAPSE [None]
  - BLOOD IRON DECREASED [None]
